FAERS Safety Report 8097532-4 (Version None)
Quarter: 2012Q1

REPORT INFORMATION
  Report Type: 
  Country: None (occurrence: None)
  Receive Date: 20120131
  Receipt Date: 20120126
  Transmission Date: 20120608
  Serious: No
  Sender: FDA-Public Use
  Company Number: US-PFIZER INC-2012022321

PATIENT
  Sex: Female
  Weight: 104 kg

DRUGS (6)
  1. CELEBREX [Suspect]
     Indication: POLYMYALGIA RHEUMATICA
  2. MULTI-VITAMINS [Concomitant]
     Dosage: UNK
  3. CELEBREX [Suspect]
     Indication: ARTHRITIS
     Dosage: 200 MG, DAILY
     Route: 048
     Dates: start: 20120101
  4. VITAMIN B6 [Concomitant]
     Dosage: UNK
  5. CALCIUM [Concomitant]
     Dosage: UNK
  6. FISH OIL [Concomitant]
     Dosage: UNK

REACTIONS (1)
  - DYSPNOEA [None]
